FAERS Safety Report 6032257-8 (Version None)
Quarter: 2009Q1

REPORT INFORMATION
  Report Type: 
  Country: None (occurrence: None)
  Receive Date: 20090108
  Receipt Date: 20090102
  Transmission Date: 20090719
  Serious: Yes (Hospitalization)
  Sender: FDA-Public Use
  Company Number: ES-ELI_LILLY_AND_COMPANY-ES200901000108

PATIENT
  Age: 82 Year
  Sex: Male

DRUGS (5)
  1. FORTEO [Suspect]
     Indication: OSTEOPOROSIS
     Dosage: 20 UG, UNKNOWN
     Route: 058
     Dates: start: 20080301, end: 20081128
  2. ARCOXIA [Concomitant]
     Dosage: UNK, UNKNOWN
     Route: 065
     Dates: start: 20081126
  3. ACTONEL [Concomitant]
     Dosage: UNK, UNKNOWN
     Route: 065
     Dates: start: 20081126
  4. SPIRIVA [Concomitant]
     Dosage: UNK, UNKNOWN
     Route: 065
     Dates: start: 20081126
  5. IDEOS [Concomitant]
     Dosage: UNK, UNKNOWN
     Route: 065
     Dates: start: 20081126

REACTIONS (4)
  - ANAEMIA [None]
  - DIARRHOEA [None]
  - GASTRIC CANCER [None]
  - VOMITING [None]
